FAERS Safety Report 8875062 (Version 1)
Quarter: 2012Q4

REPORT INFORMATION
  Report Type: 
  Country: US (occurrence: US)
  Receive Date: 20121026
  Receipt Date: 20121026
  Transmission Date: 20130627
  Serious: No
  Sender: FDA-Public Use
  Company Number: US-AMGEN-USASP2012045138

PATIENT
  Sex: Female
  Weight: 45.35 kg

DRUGS (8)
  1. ENBREL [Suspect]
     Indication: PRODUCT USED FOR UNKNOWN INDICATION
     Dosage: 50 mg, qwk
     Route: 058
  2. METHOTREXATE [Concomitant]
     Dosage: 2.5 mg, UNK
  3. VITAMIN A /00056001/ [Concomitant]
     Dosage: UNK
  4. MULTIVITAMINS, PLAIN [Concomitant]
     Dosage: UNK
  5. VITAMIN C                          /00008001/ [Concomitant]
     Dosage: 500 mg, UNK
  6. FERROUS SULFATE [Concomitant]
     Dosage: UNK
  7. FOLIC ACID [Concomitant]
     Dosage: 1 mg, UNK
  8. LUPRON DEPOT [Concomitant]
     Dosage: 3.75 mg, UNK

REACTIONS (4)
  - Weight decreased [Unknown]
  - Injection site pruritus [Unknown]
  - Pruritus [Unknown]
  - Anaemia [Unknown]
